FAERS Safety Report 4809357-0 (Version None)
Quarter: 2005Q4

REPORT INFORMATION
  Report Type: 
  Country: None (occurrence: None)
  Receive Date: 20051021
  Receipt Date: 20021220
  Transmission Date: 20060501
  Serious: Yes (Life-Threatening, Hospitalization, Other)
  Sender: FDA-Public Use
  Company Number: USA021225075

PATIENT
  Age: 52 Year
  Sex: Male

DRUGS (2)
  1. ZYPREXA [Suspect]
     Indication: DEPRESSION
     Dosage: 5 MG/ AT BEDTIME
     Dates: start: 20020916, end: 20020926
  2. WELLBUTRIN SR [Concomitant]

REACTIONS (1)
  - PULMONARY EMBOLISM [None]
